FAERS Safety Report 12340417 (Version 1)
Quarter: 2016Q2

REPORT INFORMATION
  Report Type: Spontaneous
  Country: US (occurrence: US)
  Receive Date: 20160506
  Receipt Date: 20160506
  Transmission Date: 20160815
  Serious: No
  Sender: FDA-Public Use
  Company Number: US-009507513-1605USA003213

PATIENT
  Age: 19 Year
  Sex: Female

DRUGS (2)
  1. HEXADROL [Suspect]
     Active Substance: DEXAMETHASONE
     Indication: IMMUNOSUPPRESSION
  2. HEXADROL [Suspect]
     Active Substance: DEXAMETHASONE
     Indication: SMOOTH MUSCLE CELL NEOPLASM
     Dosage: HIGH DOSE
     Route: 048

REACTIONS (1)
  - Drug ineffective [Unknown]
